FAERS Safety Report 20428634 (Version 1)
Quarter: 2022Q1

REPORT INFORMATION
  Report Type: Other
  Country: CN (occurrence: None)
  Receive Date: 20220204
  Receipt Date: 20220204
  Transmission Date: 20220423
  Serious: Yes (Life-Threatening, Other)
  Sender: FDA-Public Use
  Company Number: CN-ROCHE-3011930

PATIENT

DRUGS (5)
  1. BEVACIZUMAB [Suspect]
     Active Substance: BEVACIZUMAB
     Indication: Colorectal cancer metastatic
     Dosage: (30 TO 90 MIN, DAY 1) FOR 14 DAYS AS A CYCLE, A TOTAL OF 6 CYCLE
     Route: 041
  2. OXALIPLATIN [Suspect]
     Active Substance: OXALIPLATIN
     Indication: Colorectal cancer metastatic
     Dosage: FOR 2 H, DAY 1
     Route: 041
  3. LEUCOVORIN CALCIUM [Suspect]
     Active Substance: LEUCOVORIN CALCIUM
     Indication: Colorectal cancer metastatic
     Dosage: FOR 2 H, DAY 1;
     Route: 041
  4. FLUOROURACIL [Suspect]
     Active Substance: FLUOROURACIL
     Indication: Colorectal cancer metastatic
     Dosage: FOR 20 MIN, DAY 1,
     Route: 042
  5. FLUOROURACIL [Suspect]
     Active Substance: FLUOROURACIL
     Dosage: MICROPUMP FOR 46 H
     Route: 042

REACTIONS (4)
  - Myelosuppression [Unknown]
  - Neutropenia [Unknown]
  - Gastrointestinal disorder [Unknown]
  - Hepatic function abnormal [Unknown]
